FAERS Safety Report 8742381 (Version 3)
Quarter: 2012Q4

REPORT INFORMATION
  Report Type: Report from Study
  Country: US (occurrence: US)
  Receive Date: 20120824
  Receipt Date: 20121018
  Transmission Date: 20130627
  Serious: Yes (Hospitalization)
  Sender: FDA-Public Use
  Company Number: US-ASTELLAS-2012US002427

PATIENT
  Age: 2 Year
  Sex: Male
  Weight: 13.2 kg

DRUGS (8)
  1. TACROLIMUS OINTMENT [Suspect]
     Indication: DERMATITIS ATOPIC
     Dosage: 0.1 %, bid
     Route: 061
     Dates: start: 20110624
  2. TACROLIMUS OINTMENT [Suspect]
     Dosage: UNK, 2 1/2 applications/day
     Route: 061
     Dates: start: 20110916
  3. PEDIATEX TD [Concomitant]
     Indication: NASAL CONGESTION
     Dosage: 1 ml, Q8 hours
     Route: 048
     Dates: start: 20120120
  4. PEDIATEX TD [Concomitant]
     Indication: RHINORRHOEA
  5. PEDIATEX TD [Concomitant]
     Indication: SNEEZING
  6. CEFPROZIL [Concomitant]
     Indication: OTITIS MEDIA
     Dosage: 5 ml, Q2 hours
     Route: 048
     Dates: start: 20120120
  7. ORAPRED [Concomitant]
     Indication: CROUP INFECTIOUS
     Dosage: 5 ml, UID/QD
     Route: 048
     Dates: start: 20111103
  8. ZOVIRAX [Concomitant]
     Indication: HERPES SIMPLEX
     Dosage: 3 1/2 applications/day
     Route: 061
     Dates: start: 20110916

REACTIONS (5)
  - Off label use [Unknown]
  - Pneumonia [Recovered/Resolved]
  - Hypoxia [Recovered/Resolved]
  - Pyrexia [Recovered/Resolved]
  - Dehydration [Recovered/Resolved]
